FAERS Safety Report 15767038 (Version 1)
Quarter: 2018Q4

REPORT INFORMATION
  Report Type: Spontaneous
  Country: SE (occurrence: SE)
  Receive Date: 20181227
  Receipt Date: 20181227
  Transmission Date: 20190205
  Serious: Yes (Other)
  Sender: FDA-Public Use
  Company Number: SE-PFIZER INC-2014059243

PATIENT
  Age: 44 Year
  Sex: Male

DRUGS (9)
  1. LYRICA [Suspect]
     Active Substance: PREGABALIN
     Dosage: 600 MG, UNK
     Route: 048
  2. INDERAL [Suspect]
     Active Substance: PROPRANOLOL HYDROCHLORIDE
     Dosage: 80 MG, UNK
     Route: 048
  3. STESOLID [Suspect]
     Active Substance: DIAZEPAM
     Dosage: 30 MG, UNK
     Route: 048
  4. SURMONTIL [Concomitant]
     Active Substance: TRIMIPRAMINE MALEATE
     Dosage: UNK
  5. FLUNITRAZEPAM MYLAN [Suspect]
     Active Substance: FLUNITRAZEPAM
     Dosage: 1 MG, UNK
     Route: 048
  6. ECALTA [Concomitant]
     Active Substance: ANIDULAFUNGIN
     Dosage: UNK
  7. PANTOPRAZOLE [Suspect]
     Active Substance: PANTOPRAZOLE
     Dosage: 80 MG, UNK
     Route: 048
  8. PROPAVAN [Concomitant]
     Active Substance: PROPIOMAZINE
     Dosage: UNK
  9. OXYCONTIN [Suspect]
     Active Substance: OXYCODONE HYDROCHLORIDE
     Dosage: 60 MG, UNK
     Route: 048

REACTIONS (3)
  - Toxicity to various agents [Recovered/Resolved]
  - Depressed level of consciousness [Recovered/Resolved]
  - Fatigue [Recovered/Resolved]

NARRATIVE: CASE EVENT DATE: 20130108
